FAERS Safety Report 19880732 (Version 1)
Quarter: 2021Q3

REPORT INFORMATION
  Report Type: Spontaneous
  Country: US (occurrence: US)
  Receive Date: 20210925
  Receipt Date: 20210925
  Transmission Date: 20211014
  Serious: No
  Sender: FDA-Public Use
  Company Number: US-SA-2021SA311997

PATIENT
  Sex: Female

DRUGS (2)
  1. FABRAZYME [Suspect]
     Active Substance: AGALSIDASE BETA
     Indication: FABRY^S DISEASE
  2. FABRAZYME [Suspect]
     Active Substance: AGALSIDASE BETA
     Indication: KIDNEY TRANSPLANT REJECTION
     Dosage: STRENGTH?35 MG DOSE: 75MG EVERY TW WEEKS
     Route: 042
     Dates: start: 201912

REACTIONS (2)
  - Sleep apnoea syndrome [Unknown]
  - Ecchymosis [Unknown]
